FAERS Safety Report 12287633 (Version 2)
Quarter: 2016Q2

REPORT INFORMATION
  Report Type: Spontaneous
  Country: US (occurrence: US)
  Receive Date: 20160420
  Receipt Date: 20160423
  Transmission Date: 20160815
  Serious: No
  Sender: FDA-Public Use
  Company Number: US-TEVA-635443USA

PATIENT
  Age: 64 Year
  Sex: Female

DRUGS (1)
  1. CEFADROXIL. [Suspect]
     Active Substance: CEFADROXIL
     Route: 065

REACTIONS (2)
  - Rash [Unknown]
  - Drug hypersensitivity [Unknown]

NARRATIVE: CASE EVENT DATE: 20120418
